FAERS Safety Report 4359905-2 (Version None)
Quarter: 2004Q2

REPORT INFORMATION
  Report Type: 
  Country: None (occurrence: None)
  Receive Date: 20040518
  Receipt Date: 20040409
  Transmission Date: 20050107
  Serious: Yes (Hospitalization, Other)
  Sender: FDA-Public Use
  Company Number: DE-BRISTOL-MYERS SQUIBB COMPANY-12556387

PATIENT
  Age: 53 Year
  Sex: Female
  Weight: 77 kg

DRUGS (2)
  1. CARBOPLATIN [Suspect]
     Indication: CERVIX CANCER METASTATIC
     Route: 042
     Dates: start: 20040116, end: 20040116
  2. CAELYX [Suspect]
     Indication: CERVIX CANCER METASTATIC
     Route: 042
     Dates: start: 20040116, end: 20040116

REACTIONS (3)
  - CERVIX CANCER METASTATIC [None]
  - LEUKOPENIA [None]
  - THROMBOCYTOPENIA [None]
